FAERS Safety Report 14413334 (Version 1)
Quarter: 2018Q1

REPORT INFORMATION
  Report Type: Spontaneous
  Country: US (occurrence: US)
  Receive Date: 20180119
  Receipt Date: 20180119
  Transmission Date: 20180509
  Serious: Yes (Hospitalization)
  Sender: FDA-Public Use
  Company Number: None

PATIENT
  Age: 56 Year
  Sex: Male
  Weight: 49.8 kg

DRUGS (10)
  1. ROXICODONE [Concomitant]
     Active Substance: OXYCODONE HYDROCHLORIDE
  2. LANTUS [Concomitant]
     Active Substance: INSULIN GLARGINE
  3. PROVENTIL [Concomitant]
     Active Substance: ALBUTEROL
  4. SENOKOT [Concomitant]
     Active Substance: SENNOSIDES
  5. HUMALOG [Concomitant]
     Active Substance: INSULIN LISPRO
  6. ATIVAN [Concomitant]
     Active Substance: LORAZEPAM
  7. MVI [Concomitant]
     Active Substance: VITAMINS
  8. SPIRIVA [Concomitant]
     Active Substance: TIOTROPIUM BROMIDE MONOHYDRATE
  9. KEYTRUDA [Suspect]
     Active Substance: PEMBROLIZUMAB
     Indication: CHEMOTHERAPY
     Dosage: DATES OF USE - RECENT 6/1/17 - 9/14/17?ROUTE - IV OVER 30 MIN
     Route: 042
     Dates: start: 20170601, end: 20170914
  10. THERAGRAN [Concomitant]
     Active Substance: VITAMINS

REACTIONS (4)
  - Hyperglycaemia [None]
  - Type 1 diabetes mellitus [None]
  - Diabetic ketoacidosis [None]
  - Treatment noncompliance [None]

NARRATIVE: CASE EVENT DATE: 20171019
